FAERS Safety Report 5536958-7 (Version None)
Quarter: 2007Q4

REPORT INFORMATION
  Report Type: 
  Country: None (occurrence: None)
  Receive Date: 20071207
  Receipt Date: 20071127
  Transmission Date: 20080405
  Serious: Yes (Hospitalization, Other)
  Sender: FDA-Public Use
  Company Number: US-JNJFOC-20071001333

PATIENT
  Sex: Female
  Weight: 88.45 kg

DRUGS (33)
  1. REMICADE [Suspect]
     Route: 042
  2. REMICADE [Suspect]
     Route: 042
  3. REMICADE [Suspect]
     Route: 042
  4. REMICADE [Suspect]
     Route: 042
  5. REMICADE [Suspect]
     Route: 042
  6. REMICADE [Suspect]
     Route: 042
  7. REMICADE [Suspect]
     Route: 042
  8. REMICADE [Suspect]
     Indication: PSORIATIC ARTHROPATHY
     Route: 042
  9. REMICADE [Suspect]
     Indication: RHEUMATOID ARTHRITIS
     Route: 042
  10. VITAMIN D2 [Concomitant]
     Indication: DRUG USE FOR UNKNOWN INDICATION
     Route: 048
  11. FISH OIL [Concomitant]
     Indication: DRUG USE FOR UNKNOWN INDICATION
  12. BECONASE [Concomitant]
     Indication: DRUG USE FOR UNKNOWN INDICATION
     Route: 045
  13. EFFEXOR XR [Concomitant]
  14. EFFEXOR XR [Concomitant]
     Indication: DEPRESSION
  15. INDERAL [Concomitant]
     Route: 048
  16. INDERAL [Concomitant]
     Indication: ESSENTIAL TREMOR
     Route: 048
  17. FOLIC ACID [Concomitant]
     Route: 048
  18. FOLIC ACID [Concomitant]
     Indication: DRUG USE FOR UNKNOWN INDICATION
     Route: 048
  19. MTX [Concomitant]
     Route: 048
  20. MTX [Concomitant]
     Route: 048
  21. MTX [Concomitant]
     Route: 048
  22. MTX [Concomitant]
     Route: 048
  23. MTX [Concomitant]
     Route: 048
  24. MTX [Concomitant]
     Route: 048
  25. MTX [Concomitant]
     Indication: PSORIATIC ARTHROPATHY
     Route: 048
  26. MTX [Concomitant]
     Indication: MUSCULOSKELETAL PAIN
     Route: 048
  27. ALEVE [Concomitant]
  28. PREDNISONE TAB [Concomitant]
     Indication: DRUG USE FOR UNKNOWN INDICATION
  29. M.V.I. [Concomitant]
     Indication: NUTRITIONAL SUPPORT
  30. CA++ [Concomitant]
     Indication: NUTRITIONAL SUPPORT
  31. PIROXICAM [Concomitant]
     Indication: DRUG USE FOR UNKNOWN INDICATION
     Route: 048
  32. EFFEXOR [Concomitant]
     Indication: DRUG USE FOR UNKNOWN INDICATION
     Route: 048
  33. METAMUCIL [Concomitant]
     Indication: DRUG USE FOR UNKNOWN INDICATION
     Route: 048

REACTIONS (4)
  - ABSCESS [None]
  - APPENDICITIS PERFORATED [None]
  - ATRIAL FLUTTER [None]
  - WEST NILE VIRAL INFECTION [None]
